FAERS Safety Report 5941184-3 (Version None)
Quarter: 2008Q4

REPORT INFORMATION
  Report Type: 
  Country: None (occurrence: None)
  Receive Date: 20081104
  Receipt Date: 20081024
  Transmission Date: 20090506
  Serious: Yes (Hospitalization)
  Sender: FDA-Public Use
  Company Number: FR-PFIZER INC-2008090470

PATIENT
  Sex: Male

DRUGS (7)
  1. MARAVIROC [Suspect]
     Indication: HIV INFECTION
     Route: 048
     Dates: start: 20070731
  2. RITONAVIR [Concomitant]
  3. DARUNAVIR [Concomitant]
  4. ATAZANAVIR SULFATE [Concomitant]
  5. EMTRICITABINE/TENOFOVIR DISOPROXIL FUMARATE [Concomitant]
  6. RALTEGRAVIR [Concomitant]
  7. ETRAVIRINE [Concomitant]

REACTIONS (1)
  - ANAL CANCER RECURRENT [None]
